FAERS Safety Report 24978271 (Version 2)
Quarter: 2025Q3

REPORT INFORMATION
  Report Type: Spontaneous
  Country: JP (occurrence: JP)
  Receive Date: 20250217
  Receipt Date: 20250809
  Transmission Date: 20251021
  Serious: Yes (Other)
  Sender: ALEXION PHARMACEUTICALS
  Company Number: JP-ASTRAZENECA-250009383_011620_P_1

PATIENT
  Age: 74 Year
  Sex: Female

DRUGS (2)
  1. LYNPARZA [Suspect]
     Active Substance: OLAPARIB
     Indication: Ovarian cancer
  2. BEVACIZUMAB [Concomitant]
     Active Substance: BEVACIZUMAB
     Indication: Ovarian cancer
     Route: 065

REACTIONS (5)
  - Epistaxis [Unknown]
  - Oral mucosa erosion [Unknown]
  - Haemorrhoidal haemorrhage [Unknown]
  - Cystocele [Unknown]
  - Tumour marker increased [Unknown]
